FAERS Safety Report 23405594 (Version 1)
Quarter: 2024Q1

REPORT INFORMATION
  Report Type: Spontaneous
  Country: US (occurrence: None)
  Receive Date: 20240113
  Receipt Date: 20240113
  Transmission Date: 20240410
  Serious: Yes (Other)
  Sender: FDA-Public Use
  Company Number: None

PATIENT
  Age: 38 Year
  Sex: Female
  Weight: 50.85 kg

DRUGS (7)
  1. ATOVAQUONE AND PROGUANIL HYDROCHLORIDE [Suspect]
     Active Substance: ATOVAQUONE\PROGUANIL HYDROCHLORIDE
     Indication: Malaria prophylaxis
     Route: 048
     Dates: start: 20231224, end: 20240112
  2. Junefe [Concomitant]
  3. QULIPTA [Concomitant]
     Active Substance: ATOGEPANT
  4. BOTOX [Concomitant]
     Active Substance: ONABOTULINUMTOXINA
  5. TOPAMAX [Concomitant]
     Active Substance: TOPIRAMATE
  6. target generic allergy [Concomitant]
  7. VITAMINS [Concomitant]
     Active Substance: VITAMINS

REACTIONS (1)
  - Drug hypersensitivity [None]

NARRATIVE: CASE EVENT DATE: 20240113
